FAERS Safety Report 7642181-2 (Version None)
Quarter: 2011Q3

REPORT INFORMATION
  Report Type: 
  Country: None (occurrence: None)
  Receive Date: 20110728
  Receipt Date: 20110721
  Transmission Date: 20111222
  Serious: Yes (Other)
  Sender: FDA-Public Use
  Company Number: CHPA2011US09714

PATIENT
  Age: 79 Year
  Sex: Female

DRUGS (1)
  1. COMTREX COLD+COUGH DAY [Suspect]
     Indication: COUGH
     Dosage: UNK DF, UNK
     Route: 048
     Dates: start: 20110712, end: 20110714

REACTIONS (1)
  - HALLUCINATION [None]
